FAERS Safety Report 5120717-3 (Version None)
Quarter: 2006Q4

REPORT INFORMATION
  Report Type: 
  Country: None (occurrence: None)
  Receive Date: 20061004
  Receipt Date: 20060907
  Transmission Date: 20070319
  Serious: Yes (Hospitalization, Disabling)
  Sender: FDA-Public Use
  Company Number: US-MERCK-0609USA01569

PATIENT
  Age: 74 Year
  Sex: Female
  Weight: 60 kg

DRUGS (7)
  1. FOSAMAX [Suspect]
     Indication: OSTEOPOROSIS
     Route: 048
  2. ALTACE [Concomitant]
     Route: 065
  3. ZINC (UNSPECIFIED) [Concomitant]
     Route: 065
  4. SYNTHROID [Concomitant]
     Route: 065
  5. PREMARIN [Concomitant]
     Route: 065
  6. CELEBREX [Concomitant]
     Route: 065
  7. PRILOSEC [Concomitant]
     Route: 065

REACTIONS (1)
  - OSTEONECROSIS [None]
